FAERS Safety Report 10170542 (Version 1)
Quarter: 2014Q2

REPORT INFORMATION
  Report Type: Spontaneous
  Country: US (occurrence: US)
  Receive Date: 20140513
  Receipt Date: 20140513
  Transmission Date: 20141212
  Serious: Yes (Other)
  Sender: FDA-Public Use
  Company Number: US-AMGEN-USASP2014033426

PATIENT
  Age: 61 Year
  Sex: Female

DRUGS (2)
  1. PROLIA [Suspect]
     Indication: OSTEOPOROSIS
     Dosage: UNK
     Route: 065
     Dates: start: 2012
  2. PREDNISONE [Concomitant]

REACTIONS (7)
  - Tooth abscess [Unknown]
  - Foot fracture [Unknown]
  - Limb injury [Unknown]
  - Fracture delayed union [Unknown]
  - Tooth fracture [Unknown]
  - Bone disorder [Unknown]
  - Gait disturbance [Unknown]
